FAERS Safety Report 8433768 (Version 2)
Quarter: 2014Q3

REPORT INFORMATION
  Report Type: Spontaneous
  Country: US (occurrence: US)
  Receive Date: 20120229
  Receipt Date: 20140905
  Transmission Date: 20150326
  Serious: Yes (Hospitalization)
  Sender: FDA-Public Use
  Company Number: US-GLAXOSMITHKLINE-A0877064A

PATIENT
  Age: 82 Year
  Sex: Male
  Weight: 101 kg

DRUGS (3)
  1. PAIN MEDICATION [Suspect]
     Active Substance: UNSPECIFIED INGREDIENT
     Route: 065
  2. VELCADE [Suspect]
     Active Substance: BORTEZOMIB
     Indication: PLASMA CELL MYELOMA
     Dosage: 1.5MGM2 SEE DOSAGE TEXT
     Route: 042
     Dates: start: 20100317, end: 20100429
  3. MELPHALAN [Suspect]
     Active Substance: MELPHALAN
     Indication: PLASMA CELL MYELOMA
     Dosage: 9MGM2 SEE DOSAGE TEXT
     Route: 048
     Dates: start: 20100317, end: 20100429

REACTIONS (4)
  - Vomiting [Recovered/Resolved]
  - Anaemia [Unknown]
  - Cardiac failure [Unknown]
  - Nausea [Recovered/Resolved]
